FAERS Safety Report 10443772 (Version 3)
Quarter: 2014Q4

REPORT INFORMATION
  Report Type: Spontaneous
  Country: TR (occurrence: TR)
  Receive Date: 20140910
  Receipt Date: 20141007
  Transmission Date: 20150528
  Serious: No
  Sender: FDA-Public Use
  Company Number: PHHY2014TR109058

PATIENT
  Sex: Male

DRUGS (2)
  1. ALVASTIN [Concomitant]
     Indication: HYPERLIPIDAEMIA
     Dosage: 20 MG, UNK
  2. TASIGNA [Suspect]
     Active Substance: NILOTINIB
     Dosage: 800 MG, DAILY
     Route: 048
     Dates: start: 201405

REACTIONS (2)
  - Rash papular [Not Recovered/Not Resolved]
  - Rash generalised [Not Recovered/Not Resolved]
